FAERS Safety Report 14899307 (Version 1)
Quarter: 2018Q2

REPORT INFORMATION
  Report Type: Spontaneous
  Country: GB (occurrence: GB)
  Receive Date: 20180516
  Receipt Date: 20180516
  Transmission Date: 20180711
  Serious: Yes (Disabling)
  Sender: FDA-Public Use
  Company Number: GB-TEVA-2018-GB-892815

PATIENT
  Age: 69 Year
  Sex: Male

DRUGS (2)
  1. OMEPRAZOLE. [Suspect]
     Active Substance: OMEPRAZOLE
     Indication: GASTROOESOPHAGEAL REFLUX DISEASE
     Dosage: 2 DOSAGE FORMS DAILY;
     Route: 048
  2. FULTIUM-D3 [Concomitant]
     Active Substance: CHOLECALCIFEROL

REACTIONS (3)
  - Balance disorder [Not Recovered/Not Resolved]
  - Micturition urgency [Not Recovered/Not Resolved]
  - Urinary incontinence [Not Recovered/Not Resolved]
